FAERS Safety Report 21135331 (Version 1)
Quarter: 2022Q3

REPORT INFORMATION
  Report Type: Spontaneous
  Country: AT (occurrence: AT)
  Receive Date: 20220727
  Receipt Date: 20220727
  Transmission Date: 20221027
  Serious: Yes (Life-Threatening, Hospitalization, Other)
  Sender: FDA-Public Use
  Company Number: AT-EUSA PHARMA (UK) LIMITED-2022AT000311

PATIENT

DRUGS (1)
  1. SYLVANT [Suspect]
     Active Substance: SILTUXIMAB
     Indication: Castleman^s disease
     Dosage: 800 MG, EVERY 3 WEEKS
     Route: 065
     Dates: start: 202111, end: 202204

REACTIONS (5)
  - Cardiac failure [Unknown]
  - Ascites [Unknown]
  - Generalised oedema [Unknown]
  - Renal impairment [Unknown]
  - Disease progression [Unknown]
